FAERS Safety Report 24702082 (Version 1)
Quarter: 2024Q4

REPORT INFORMATION
  Report Type: Report from Study
  Country: FI (occurrence: FI)
  Receive Date: 20241205
  Receipt Date: 20241205
  Transmission Date: 20250115
  Serious: Yes (Other)
  Sender: SPRINGWORKS THERAPEUTIC
  Company Number: FI-ORG100013053-SW-000360

PATIENT

DRUGS (10)
  1. NIROGACESTAT [Suspect]
     Active Substance: NIROGACESTAT
     Indication: Desmoid tumour
     Dosage: 4.2 MG/KG, BID
     Route: 048
     Dates: start: 20180129, end: 20200131
  2. METHOTREXATE [Concomitant]
     Active Substance: METHOTREXATE
     Indication: Desmoid tumour
     Dosage: 30 MG/M2 X 39 = 1170 MG/M2
     Dates: start: 201206, end: 201306
  3. METHOTREXATE [Concomitant]
     Active Substance: METHOTREXATE
     Dosage: 30 MG/M2 X 6 + 15 MG/M2 X 8 = 300 MG/M2
     Dates: start: 201411, end: 201502
  4. VINBLASTINE [Concomitant]
     Active Substance: VINBLASTINE
     Indication: Desmoid tumour
     Dosage: 5 MG/M2 X 39 = 195 MG/M2
     Dates: start: 201206, end: 201306
  5. VINBLASTINE [Concomitant]
     Active Substance: VINBLASTINE
     Dosage: 5 MG/M2 X 6 + 2,5 MG/M2 X 8 = 50 MG/M2
     Dates: start: 201411, end: 201502
  6. VINCRISTINE [Concomitant]
     Active Substance: VINCRISTINE
     Indication: Desmoid tumour
     Dosage: 1,5 MG/M2 X 18 = 27 MG/M2
     Dates: start: 201503, end: 201508
  7. ACTINOMYCIN D [Concomitant]
     Active Substance: DACTINOMYCIN
     Indication: Desmoid tumour
     Dosage: 1,5 MG/M2 X 6 = 9 MG/M2
     Dates: start: 201503, end: 201508
  8. CYCLOPHOSPHAMIDE [Concomitant]
     Active Substance: CYCLOPHOSPHAMIDE
     Indication: Desmoid tumour
     Dosage: 20 MG/KG X 6 = 120 MG/KG (3600 MG/M2)
     Dates: start: 201503, end: 201508
  9. HYDROXYUREA [Concomitant]
     Active Substance: HYDROXYUREA
     Indication: Desmoid tumour
     Dosage: 20 MG/KG/DAY
     Route: 048
     Dates: start: 201509, end: 201612
  10. ENOXAPARIN [Concomitant]
     Active Substance: ENOXAPARIN
     Indication: Pelvic venous thrombosis
     Dosage: UNK
     Dates: start: 201410, end: 201701

REACTIONS (3)
  - Arthralgia [Recovered/Resolved]
  - Osteonecrosis [Not Recovered/Not Resolved]
  - Synovitis [Recovered/Resolved]

NARRATIVE: CASE EVENT DATE: 20200130
